FAERS Safety Report 7971640-8 (Version None)
Quarter: 2011Q4

REPORT INFORMATION
  Report Type: 
  Country: None (occurrence: None)
  Receive Date: 20111212
  Receipt Date: 20110430
  Transmission Date: 20120403
  Serious: No
  Sender: FDA-Public Use
  Company Number: US-B.I. PHARMACEUTICALS,INC./RIDGEFIELD-2011-BP-12275BP

PATIENT
  Sex: Female

DRUGS (8)
  1. SPIRIVA [Suspect]
     Indication: CHRONIC OBSTRUCTIVE PULMONARY DISEASE
     Dosage: 18 MCG
     Route: 055
     Dates: start: 20110301, end: 20110429
  2. SYNTHROID [Concomitant]
     Indication: HYPOTHYROIDISM
     Dosage: 25 MG
  3. METOPROLOL TARTRATE [Concomitant]
     Indication: ARRHYTHMIA
     Dosage: 50 MG
  4. PRILOSEC [Concomitant]
     Indication: DYSPEPSIA
  5. LASIX [Concomitant]
     Indication: HYPERTENSION
     Dosage: 80 MG
  6. PAXIL [Concomitant]
     Indication: ANTIDEPRESSANT THERAPY
     Dosage: 15 MG
  7. DIOVAN [Concomitant]
     Indication: ARRHYTHMIA
     Dosage: 80 MG
  8. MELATONIN [Concomitant]
     Dosage: 6 MG

REACTIONS (4)
  - COUGH [None]
  - ERYTHEMA [None]
  - PRURITUS GENERALISED [None]
  - DRY MOUTH [None]
